FAERS Safety Report 6744481-7 (Version None)
Quarter: 2010Q2

REPORT INFORMATION
  Report Type: 
  Country: None (occurrence: None)
  Receive Date: 20100527
  Receipt Date: 20100514
  Transmission Date: 20101027
  Serious: Yes (Other)
  Sender: FDA-Public Use
  Company Number: BR-PFIZER INC-2010060976

PATIENT
  Age: 37 Year
  Sex: Female
  Weight: 80 kg

DRUGS (1)
  1. DOSTINEX [Suspect]
     Indication: ADENOMA BENIGN
     Dosage: 1 TABLET WEEKLY
     Route: 048
     Dates: start: 20050101

REACTIONS (6)
  - BLOOD PROLACTIN INCREASED [None]
  - CAESAREAN SECTION [None]
  - DIZZINESS [None]
  - EXPIRED DRUG ADMINISTERED [None]
  - HEADACHE [None]
  - NAUSEA [None]
